FAERS Safety Report 9357557 (Version 2)
Quarter: 2013Q3

REPORT INFORMATION
  Report Type: Spontaneous
  Country: US (occurrence: US)
  Receive Date: 20130620
  Receipt Date: 20130719
  Transmission Date: 20140515
  Serious: Yes (Death)
  Sender: FDA-Public Use
  Company Number: US-SANOFI-AVENTIS-2013SA061579

PATIENT
  Age: 55 Year
  Sex: Female
  Weight: 113.4 kg

DRUGS (6)
  1. LANTUS [Suspect]
     Indication: DIABETES MELLITUS
     Dosage: DOSE:40 UNIT(S)
     Route: 058
     Dates: end: 20130605
  2. HYZAAR [Concomitant]
     Indication: BLOOD PRESSURE
     Dosage: 100/25
     Route: 065
     Dates: start: 20130418
  3. NORCO [Concomitant]
     Indication: PAIN
     Dosage: PRN, 10/325 MG
     Dates: start: 2007
  4. METFORMIN [Concomitant]
     Dosage: 1000 MG
     Route: 065
     Dates: start: 2006
  5. BACTRIM DS [Concomitant]
     Indication: URINARY TRACT INFECTION
     Dates: start: 20130418, end: 20130425
  6. CELEBREX [Concomitant]
     Indication: PAIN
     Dosage: FREQUENCY: DAILY AS NEEDED
     Dates: start: 20130503, end: 20130510

REACTIONS (1)
  - Coma [Fatal]
